FAERS Safety Report 19070120 (Version 1)
Quarter: 2021Q1

REPORT INFORMATION
  Report Type: Spontaneous
  Country: DE (occurrence: DE)
  Receive Date: 20210329
  Receipt Date: 20210329
  Transmission Date: 20210420
  Serious: Yes (Hospitalization)
  Sender: FDA-Public Use
  Company Number: DE-ASTRAZENECA-2021A217383

PATIENT
  Age: 63 Year
  Sex: Male

DRUGS (2)
  1. ROFLUMILAST. [Suspect]
     Active Substance: ROFLUMILAST
     Dosage: 250 MG FOR 28 DAYS
     Route: 048
  2. ROFLUMILAST. [Suspect]
     Active Substance: ROFLUMILAST
     Dosage: INCREASE TO 500 MG ONCE DAILY
     Route: 048

REACTIONS (1)
  - Respiratory failure [Unknown]
